FAERS Safety Report 13926986 (Version 1)
Quarter: 2017Q3

REPORT INFORMATION
  Report Type: Spontaneous
  Country: BR (occurrence: BR)
  Receive Date: 20170901
  Receipt Date: 20170901
  Transmission Date: 20171127
  Serious: Yes (Other)
  Sender: FDA-Public Use
  Company Number: BR-GLAXOSMITHKLINE-BR2017GSK113839

PATIENT
  Sex: Male

DRUGS (1)
  1. ZINNAT [Suspect]
     Active Substance: CEFUROXIME AXETIL
     Indication: PRODUCT USED FOR UNKNOWN INDICATION
     Dosage: 7 ML, BID
     Route: 048

REACTIONS (6)
  - Drug ineffective [Unknown]
  - Product quality issue [Recovered/Resolved]
  - Pneumonia [Unknown]
  - Product storage error [Unknown]
  - Poor quality drug administered [Unknown]
  - Prescribed overdose [Unknown]
